FAERS Safety Report 4505494-9 (Version None)
Quarter: 2004Q4

REPORT INFORMATION
  Report Type: 
  Country: None (occurrence: None)
  Receive Date: 20041117
  Receipt Date: 20041117
  Transmission Date: 20050328
  Serious: Yes (Hospitalization)
  Sender: FDA-Public Use
  Company Number: None

PATIENT
  Age: 27 Year
  Sex: Female
  Weight: 54.4316 kg

DRUGS (1)
  1. POLYGAM [Suspect]
     Indication: HYPOGAMMAGLOBULINAEMIA
     Dosage: 20 GM Q MONTH IV
     Route: 042
     Dates: start: 20041028, end: 20041028

REACTIONS (5)
  - BACK PAIN [None]
  - CHILLS [None]
  - CYANOSIS [None]
  - INFUSION RELATED REACTION [None]
  - PALLOR [None]
